FAERS Safety Report 6509281-1 (Version None)
Quarter: 2009Q4

REPORT INFORMATION
  Report Type: 
  Country: None (occurrence: None)
  Receive Date: 20091222
  Receipt Date: 20091214
  Transmission Date: 20100525
  Serious: Yes (Hospitalization)
  Sender: FDA-Public Use
  Company Number: US-BIOGENIDEC-2009BI036848

PATIENT
  Age: 37 Year
  Sex: Female

DRUGS (1)
  1. AVONEX [Suspect]
     Indication: MULTIPLE SCLEROSIS
     Route: 030
     Dates: start: 20081024

REACTIONS (7)
  - BALANCE DISORDER [None]
  - HEMIPARESIS [None]
  - HYPOAESTHESIA [None]
  - SENSORY DISTURBANCE [None]
  - SEROTONIN SYNDROME [None]
  - STRESS [None]
  - TREMOR [None]
